FAERS Safety Report 17000051 (Version 1)
Quarter: 2019Q4

REPORT INFORMATION
  Report Type: Spontaneous
  Country: CN (occurrence: CN)
  Receive Date: 20191106
  Receipt Date: 20191106
  Transmission Date: 20200122
  Serious: Yes (Hospitalization, Other)
  Sender: FDA-Public Use
  Company Number: CN-PFIZER INC-2019474605

PATIENT
  Age: 4 Day
  Sex: Male
  Weight: 2.5 kg

DRUGS (2)
  1. TAZOCIN [Suspect]
     Active Substance: PIPERACILLIN SODIUM\TAZOBACTAM SODIUM
     Indication: ANTI-INFECTIVE THERAPY
     Dosage: 235 MG, THREE TIMES PER THREE DAY
     Route: 042
     Dates: start: 20190914, end: 20190920
  2. XIN ZHI JUN (CEFOTAXIME SODIUM\SULBACTAM SODIUM) [Suspect]
     Active Substance: CEFOTAXIME SODIUM\SULBACTAM SODIUM
     Indication: ANTI-INFECTIVE THERAPY
     Dosage: 187 MG, 2X/DAY
     Route: 042
     Dates: start: 20190917, end: 20190920

REACTIONS (3)
  - Thrombocytopenia neonatal [Recovered/Resolved]
  - Sepsis neonatal [Unknown]
  - Haemorrhage subcutaneous [Recovered/Resolved]

NARRATIVE: CASE EVENT DATE: 20190917
